FAERS Safety Report 14579408 (Version 7)
Quarter: 2019Q1

REPORT INFORMATION
  Report Type: Report from Study
  Country: US (occurrence: US)
  Receive Date: 20180227
  Receipt Date: 20190226
  Transmission Date: 20190417
  Serious: Yes (Death, Hospitalization)
  Sender: FDA-Public Use
  Company Number: US-ACTELION-A-NJ2018-168181

PATIENT
  Age: 73 Year
  Sex: Male

DRUGS (10)
  1. ADCIRCA [Concomitant]
     Active Substance: TADALAFIL
  2. DILTIAZEM. [Concomitant]
     Active Substance: DILTIAZEM
  3. ALLOPURINOL. [Concomitant]
     Active Substance: ALLOPURINOL
  4. TAMSULOSIN [Concomitant]
     Active Substance: TAMSULOSIN
  5. SOTALOL HCL [Concomitant]
     Active Substance: SOTALOL
  6. ELIQUIS [Concomitant]
     Active Substance: APIXABAN
  7. TRACLEER [Suspect]
     Active Substance: BOSENTAN
     Indication: PULMONARY ARTERIAL HYPERTENSION
     Dosage: 125 MG, QD
     Route: 048
  8. LEVOTHYROXINE. [Concomitant]
     Active Substance: LEVOTHYROXINE
  9. POTASSIUM CHLORIDE. [Concomitant]
     Active Substance: POTASSIUM CHLORIDE
  10. BUMEX [Concomitant]
     Active Substance: BUMETANIDE

REACTIONS (8)
  - Cardiac flutter [Not Recovered/Not Resolved]
  - Dizziness [Unknown]
  - Myocardial infarction [Fatal]
  - Product dose omission [Unknown]
  - Fatigue [Unknown]
  - Atrial fibrillation [Unknown]
  - Heart rate increased [Unknown]
  - Cardiac pacemaker insertion [Not Recovered/Not Resolved]

NARRATIVE: CASE EVENT DATE: 201804
